FAERS Safety Report 13355113 (Version 1)
Quarter: 2017Q1

REPORT INFORMATION
  Report Type: Report from Study
  Country: None (occurrence: US)
  Receive Date: 20170321
  Receipt Date: 20170321
  Transmission Date: 20170429
  Serious: Yes (Other)
  Sender: FDA-Public Use
  Company Number: US-ABBVIE-17K-163-1910983-00

PATIENT
  Sex: Male

DRUGS (1)
  1. HUMIRA [Suspect]
     Active Substance: ADALIMUMAB
     Indication: CROHN^S DISEASE
     Route: 058

REACTIONS (4)
  - Fistula discharge [Not Recovered/Not Resolved]
  - Post procedural infection [Recovering/Resolving]
  - Anal fistula [Recovering/Resolving]
  - Intestinal resection [Unknown]

NARRATIVE: CASE EVENT DATE: 2016
